FAERS Safety Report 12586389 (Version 2)
Quarter: 2017Q3

REPORT INFORMATION
  Report Type: Spontaneous
  Country: US (occurrence: US)
  Receive Date: 20160725
  Receipt Date: 20170929
  Transmission Date: 20171127
  Serious: No
  Sender: FDA-Public Use
  Company Number: US-BAYER-2016-143868

PATIENT
  Age: 73 Year
  Sex: Female
  Weight: 90.7 kg

DRUGS (3)
  1. URSODIOL. [Concomitant]
     Active Substance: URSODIOL
  2. LACTULOSE. [Concomitant]
     Active Substance: LACTULOSE
  3. MIRALAX [Suspect]
     Active Substance: POLYETHYLENE GLYCOL 3350
     Indication: CONSTIPATION
     Dosage: 1 DF, UNK
     Route: 048

REACTIONS (2)
  - Incorrect drug administration duration [None]
  - Intentional product misuse [Unknown]
